FAERS Safety Report 22233442 (Version 1)
Quarter: 2023Q2

REPORT INFORMATION
  Report Type: Spontaneous
  Country: US (occurrence: None)
  Receive Date: 20230419
  Receipt Date: 20230419
  Transmission Date: 20230721
  Serious: Yes (Life-Threatening, Hospitalization, Disabling, Other)
  Sender: FDA-Public Use
  Company Number: None

PATIENT
  Age: 54 Year
  Sex: Male
  Weight: 135 kg

DRUGS (5)
  1. PRADAXA [Suspect]
     Active Substance: DABIGATRAN ETEXILATE MESYLATE
     Indication: Thrombosis
     Dosage: FREQUENCY : TWICE A DAY;?
     Route: 048
  2. blood pressure [Concomitant]
  3. UNSPECIFIED INGREDIENT [Concomitant]
     Active Substance: UNSPECIFIED INGREDIENT
  4. UNSPECIFIED INGREDIENT [Concomitant]
     Active Substance: UNSPECIFIED INGREDIENT
  5. DEVICE [Concomitant]
     Active Substance: DEVICE

REACTIONS (5)
  - Internal haemorrhage [None]
  - Neuropathy peripheral [None]
  - Radiculopathy [None]
  - Pain [None]
  - Impaired quality of life [None]

NARRATIVE: CASE EVENT DATE: 20180409
